FAERS Safety Report 9674958 (Version 1)
Quarter: 2013Q4

REPORT INFORMATION
  Report Type: Spontaneous
  Country: US (occurrence: None)
  Receive Date: 20131106
  Receipt Date: 20131106
  Transmission Date: 20140711
  Serious: Yes (Other)
  Sender: FDA-Public Use
  Company Number: None

PATIENT
  Age: 39 Year
  Sex: Male
  Weight: 102.51 kg

DRUGS (4)
  1. PHENYTOIN [Suspect]
     Indication: EPILEPSY
     Dosage: 3 CAPSULES?FEW MONTHS
     Route: 048
  2. MULTIVITAMIN [Concomitant]
  3. AMBROTOSE [Concomitant]
  4. ANTIOXIDANT [Concomitant]

REACTIONS (2)
  - Erythema nodosum [None]
  - Arthropathy [None]
